FAERS Safety Report 20903744 (Version 2)
Quarter: 2022Q2

REPORT INFORMATION
  Report Type: Other
  Country: QA (occurrence: QA)
  Receive Date: 20220602
  Receipt Date: 20220614
  Transmission Date: 20220721
  Serious: Yes (Other)
  Sender: FDA-Public Use
  Company Number: QA-DEXPHARM-20220837

PATIENT
  Age: 11 Year
  Sex: Male

DRUGS (3)
  1. DEXAMETHASONE [Suspect]
     Active Substance: DEXAMETHASONE
     Indication: Acute lymphocytic leukaemia
  2. VINCRISTINE [Suspect]
     Active Substance: VINCRISTINE
     Indication: Acute lymphocytic leukaemia
  3. DOXORUBICIN [Suspect]
     Active Substance: DOXORUBICIN
     Indication: Acute lymphocytic leukaemia

REACTIONS (6)
  - Venoocclusive liver disease [Recovered/Resolved]
  - Weight increased [Unknown]
  - Hepatomegaly [Unknown]
  - Ascites [Unknown]
  - Thrombocytopenia [Unknown]
  - Drug interaction [Unknown]
